FAERS Safety Report 7971106-5 (Version None)
Quarter: 2011Q4

REPORT INFORMATION
  Report Type: 
  Country: None (occurrence: None)
  Receive Date: 20111212
  Receipt Date: 20111212
  Transmission Date: 20120403
  Serious: Yes (Other)
  Sender: FDA-Public Use
  Company Number: None

PATIENT
  Age: 53 Year
  Sex: Female
  Weight: 68.038 kg

DRUGS (5)
  1. LYRICA [Suspect]
     Indication: NEURALGIA
     Dosage: 1 CAPSULE
     Route: 048
  2. HERACILLIN [Concomitant]
  3. AMOXICILLIN [Concomitant]
  4. LYRICA [Concomitant]
     Indication: SINUS HEADACHE
  5. DOXYCYCLINE [Concomitant]
     Indication: NECK PAIN

REACTIONS (7)
  - APHASIA [None]
  - AMNESIA [None]
  - PARANOIA [None]
  - TARDIVE DYSKINESIA [None]
  - ABNORMAL BEHAVIOUR [None]
  - DISTURBANCE IN ATTENTION [None]
  - ANXIETY [None]
